FAERS Safety Report 6405927-7 (Version None)
Quarter: 2009Q4

REPORT INFORMATION
  Report Type: 
  Country: None (occurrence: None)
  Receive Date: 20091016
  Receipt Date: 20091016
  Transmission Date: 20100525
  Serious: Yes (Death)
  Sender: FDA-Public Use
  Company Number: None

PATIENT
  Age: 74 Year
  Sex: Male
  Weight: 54.4316 kg

DRUGS (1)
  1. VYTORIN [Suspect]
     Indication: BLOOD CHOLESTEROL DECREASED
     Dosage: 1/2 TABLET DAILY
     Dates: start: 20050425, end: 20070218

REACTIONS (2)
  - BRAIN NEOPLASM MALIGNANT [None]
  - LYMPHOMA [None]
